FAERS Safety Report 21286474 (Version 2)
Quarter: 2022Q3

REPORT INFORMATION
  Report Type: Spontaneous
  Country: US (occurrence: US)
  Receive Date: 20220902
  Receipt Date: 20220905
  Transmission Date: 20221027
  Serious: No
  Sender: FDA-Public Use
  Company Number: US-JNJFOC-20220849535

PATIENT

DRUGS (1)
  1. IMODIUM A-D [Suspect]
     Active Substance: LOPERAMIDE HYDROCHLORIDE
     Indication: Diarrhoea
     Dosage: DOSE: 3-4 PILLS 1
     Route: 065

REACTIONS (4)
  - Drug ineffective [Unknown]
  - Product outer packaging issue [Unknown]
  - Product blister packaging issue [Unknown]
  - Incorrect dose administered [Unknown]
